FAERS Safety Report 4364128-7 (Version None)
Quarter: 2004Q2

REPORT INFORMATION
  Report Type: 
  Country: None (occurrence: None)
  Receive Date: 20040519
  Receipt Date: 20040506
  Transmission Date: 20050107
  Serious: Yes (Disabling)
  Sender: FDA-Public Use
  Company Number: 2004-BP-01716BP

PATIENT
  Age: 15 Year
  Sex: Male
  Weight: 157.6 kg

DRUGS (3)
  1. MOBIC [Suspect]
     Indication: ARTHRALGIA
     Dosage: 7.5 MG (7.5 MG, 7.5 MG QD), PO
     Route: 048
     Dates: start: 20040226, end: 20040227
  2. MOBIC [Suspect]
     Indication: CONTUSION
     Dosage: 7.5 MG (7.5 MG, 7.5 MG QD), PO
     Route: 048
     Dates: start: 20040226, end: 20040227
  3. MOBIC [Suspect]
     Indication: GROIN PAIN
     Dosage: 7.5 MG (7.5 MG, 7.5 MG QD), PO
     Route: 048
     Dates: start: 20040226, end: 20040227

REACTIONS (3)
  - FACIAL PALSY [None]
  - MEDICATION ERROR [None]
  - OFF LABEL USE [None]
